FAERS Safety Report 21436522 (Version 2)
Quarter: 2022Q4

REPORT INFORMATION
  Report Type: Report from Study
  Country: FI (occurrence: FI)
  Receive Date: 20221010
  Receipt Date: 20221215
  Transmission Date: 20230113
  Serious: Yes (Life-Threatening, Hospitalization, Other)
  Sender: FDA-Public Use
  Company Number: FI-CELLTRION HEALTHCARE HUNGARY KFT-2022FI015830

PATIENT
  Age: 69 Year
  Sex: Female
  Weight: 55.9 kg

DRUGS (12)
  1. RITUXIMAB [Suspect]
     Active Substance: RITUXIMAB
     Indication: Follicular lymphoma
     Dosage: WEEKLY FOR CYCLE 1 AND THEN DAY 1 FOR CYCLES 2 TO 5
     Route: 042
  2. RITUXIMAB [Suspect]
     Active Substance: RITUXIMAB
     Dosage: WEEKLY FOR CYCLE 1 AND THEN DAY 1 FOR CYCLES 2 TO 5
     Route: 042
     Dates: start: 20220422
  3. RITUXIMAB [Suspect]
     Active Substance: RITUXIMAB
     Dosage: WEEKLY FOR CYCLE 1 AND THEN DAY 1 FOR CYCLES 2 TO 5
     Route: 042
     Dates: start: 20220811
  4. RITUXIMAB [Suspect]
     Active Substance: RITUXIMAB
     Indication: Follicular lymphoma
     Dosage: WEEKLY FOR CYCLE 1 AND THEN DAY 1 FOR CYCLES 2 TO 5
     Dates: start: 20220811
  5. RITUXIMAB [Suspect]
     Active Substance: RITUXIMAB
     Dosage: WEEKLY FOR CYCLE 1 AND THEN DAY 1 FOR CYCLES 2 TO 5
     Dates: start: 20220422
  6. RITUXIMAB [Suspect]
     Active Substance: RITUXIMAB
     Dosage: WEEKLY FOR CYCLE 1 AND THEN DAY 1 FOR CYCLES 2 TO 5
  7. LENALIDOMIDE [Suspect]
     Active Substance: LENALIDOMIDE
     Indication: Follicular lymphoma
     Dosage: DAYS 1 TO 21 FOR CYCLES 1 TO 12
     Route: 048
  8. LENALIDOMIDE [Suspect]
     Active Substance: LENALIDOMIDE
     Dosage: DAYS 1 TO 21 FOR CYCLES 1 TO 12
     Route: 048
     Dates: start: 20220421
  9. LENALIDOMIDE [Suspect]
     Active Substance: LENALIDOMIDE
     Dosage: DAYS 1 TO 21 FOR CYCLES 1 TO 12
     Route: 048
     Dates: start: 20220901
  10. TAFASITAMAB [Suspect]
     Active Substance: TAFASITAMAB
     Indication: Follicular lymphoma
     Dosage: WEEKLY FOR CYCLES 1 TO 3 AND DAYS 1, 15 FOR CYCLES 4 TO 12
     Dates: start: 20220421
  11. TAFASITAMAB [Suspect]
     Active Substance: TAFASITAMAB
     Dosage: WEEKLY FOR CYCLES 1 TO 3 AND DAYS 1, 15 FOR CYCLES 4 TO 12
  12. TAFASITAMAB [Suspect]
     Active Substance: TAFASITAMAB
     Dosage: WEEKLY FOR CYCLES 1 TO 3 AND DAYS 1, 15 FOR CYCLES 4 TO 12
     Dates: start: 20220825

REACTIONS (5)
  - Pseudomonal sepsis [Unknown]
  - Anal ulcer [Unknown]
  - Neutropenic infection [Recovering/Resolving]
  - Norovirus infection [Recovering/Resolving]
  - Anal fungal infection [Unknown]

NARRATIVE: CASE EVENT DATE: 20220901
